FAERS Safety Report 23689551 (Version 1)
Quarter: 2024Q1

REPORT INFORMATION
  Report Type: Spontaneous
  Country: US (occurrence: US)
  Receive Date: 20240331
  Receipt Date: 20240331
  Transmission Date: 20240409
  Serious: No
  Sender: FDA-Public Use
  Company Number: US-TEVA-VS-3153956

PATIENT
  Sex: Female

DRUGS (1)
  1. METHYLPHENIDATE HYDROCHLORIDE [Suspect]
     Active Substance: METHYLPHENIDATE HYDROCHLORIDE
     Indication: Attention deficit hyperactivity disorder
     Dosage: CAPSULES - EXTENDED / SUSTAINED RELEAS
     Route: 065

REACTIONS (12)
  - Adverse drug reaction [Unknown]
  - Drug ineffective [Unknown]
  - Headache [Unknown]
  - Lethargy [Unknown]
  - Diarrhoea [Unknown]
  - Muscle twitching [Unknown]
  - Panic attack [Unknown]
  - Hyperhidrosis [Unknown]
  - Ear disorder [Unknown]
  - Dizziness [Unknown]
  - Irritability [Unknown]
  - Language disorder [Unknown]
